FAERS Safety Report 10022795 (Version 2)
Quarter: 2014Q1

REPORT INFORMATION
  Report Type: Report from Study
  Country: US (occurrence: US)
  Receive Date: 20140319
  Receipt Date: 20140319
  Transmission Date: 20141002
  Serious: Yes (Hospitalization)
  Sender: FDA-Public Use
  Company Number: US-JNJFOC-20140211766

PATIENT
  Age: 85 Year
  Sex: Female
  Weight: 58.9 kg

DRUGS (13)
  1. IBRUTINIB [Suspect]
     Indication: LYMPHOCYTIC LYMPHOMA
     Route: 048
     Dates: start: 20121224
  2. IBRUTINIB [Suspect]
     Indication: CHRONIC LYMPHOCYTIC LEUKAEMIA
     Route: 048
     Dates: start: 20121224
  3. PRADAXA [Concomitant]
     Indication: ATRIAL FIBRILLATION
     Route: 048
  4. DOMPERIDONE [Concomitant]
     Indication: DYSPEPSIA
     Route: 048
     Dates: start: 20130603
  5. DRONEDARONE [Concomitant]
     Indication: ATRIAL FIBRILLATION
     Route: 048
  6. FLUTICASONE SALMETEROL [Concomitant]
     Indication: CHRONIC OBSTRUCTIVE PULMONARY DISEASE
     Route: 055
  7. MUCINEX [Concomitant]
     Indication: UPPER-AIRWAY COUGH SYNDROME
     Route: 048
  8. OMEPRAZOLE [Concomitant]
     Indication: COELIAC DISEASE
     Route: 048
  9. OXYBUTYNIN CHLORIDE [Concomitant]
     Indication: PROPHYLAXIS
     Route: 048
  10. TRIMETHADIONE [Concomitant]
     Indication: CHRONIC OBSTRUCTIVE PULMONARY DISEASE
     Route: 055
  11. NASONEX [Concomitant]
     Indication: UPPER-AIRWAY COUGH SYNDROME
     Route: 055
     Dates: start: 20130408
  12. SIMBRINZA [Concomitant]
     Indication: OCULAR HYPERTENSION
     Dates: start: 20130709
  13. TYLENOL [Concomitant]
     Indication: NECK PAIN
     Route: 048
     Dates: start: 201306

REACTIONS (1)
  - Vitreous haemorrhage [Recovered/Resolved]
